FAERS Safety Report 19413845 (Version 1)
Quarter: 2021Q2

REPORT INFORMATION
  Report Type: Spontaneous
  Country: US (occurrence: US)
  Receive Date: 20210614
  Receipt Date: 20210614
  Transmission Date: 20210717
  Serious: No
  Sender: FDA-Public Use
  Company Number: US-ORGANON-O2105USA002329

PATIENT
  Age: 46 Year
  Sex: Female

DRUGS (2)
  1. PREGNYL [Suspect]
     Active Substance: CHORIOGONADOTROPIN ALFA
     Dosage: 1000 UNITS, THREE TIMES A WEEK
     Route: 030
     Dates: start: 20210501
  2. STERILE WATER [Suspect]
     Active Substance: WATER
     Dosage: UNK
     Route: 030
     Dates: start: 20210501

REACTIONS (3)
  - Wrong technique in product usage process [Unknown]
  - No adverse event [Unknown]
  - Product preparation issue [Unknown]

NARRATIVE: CASE EVENT DATE: 20210501
